FAERS Safety Report 20612392 (Version 2)
Quarter: 2022Q3

REPORT INFORMATION
  Report Type: Spontaneous
  Country: DE (occurrence: DE)
  Receive Date: 20220318
  Receipt Date: 20220701
  Transmission Date: 20221026
  Serious: Yes (Other)
  Sender: FDA-Public Use
  Company Number: DE-NOVARTISPH-NVSC2022DE062307

PATIENT
  Sex: Female

DRUGS (1)
  1. SALBUHEXAL [Suspect]
     Active Substance: ALBUTEROL
     Indication: Asthma
     Dosage: UNK (200DOS 3ASP V1 DE)
     Route: 055

REACTIONS (4)
  - Dyspnoea [Unknown]
  - Product quality issue [Unknown]
  - Panic disorder [Unknown]
  - Vomiting [Unknown]

NARRATIVE: CASE EVENT DATE: 20220301
